FAERS Safety Report 5776061-4 (Version None)
Quarter: 2008Q2

REPORT INFORMATION
  Report Type: 
  Country: None (occurrence: None)
  Receive Date: 20080617
  Receipt Date: 20080610
  Transmission Date: 20081010
  Serious: No
  Sender: FDA-Public Use
  Company Number: JP-ABBOTT-06P-087-0342192-00

PATIENT
  Sex: Male

DRUGS (15)
  1. NORVIR [Suspect]
     Indication: HIV INFECTION
     Route: 048
     Dates: start: 20060116, end: 20060713
  2. NORVIR [Suspect]
     Route: 048
     Dates: start: 20060714, end: 20061116
  3. NORVIR [Suspect]
     Route: 048
     Dates: start: 20061117, end: 20070524
  4. KALETRA [Suspect]
     Indication: HIV INFECTION
     Route: 048
     Dates: start: 20070525
  5. ATAZANAVIR [Suspect]
     Indication: HIV INFECTION
     Route: 048
     Dates: start: 20060116, end: 20060713
  6. ATAZANAVIR [Suspect]
     Route: 048
     Dates: start: 20061117, end: 20070524
  7. FOSAMPRENAVIR [Suspect]
     Indication: HIV INFECTION
     Route: 048
     Dates: start: 20060714, end: 20061116
  8. ABACAVIR SULFATE/LAMIVUDINE [Suspect]
     Indication: HIV INFECTION
     Route: 048
     Dates: start: 20050401, end: 20071031
  9. EFAVIRENZ [Concomitant]
     Indication: HIV INFECTION
     Route: 048
     Dates: start: 20060116
  10. PAROXETINE HCL [Concomitant]
     Indication: GENERALISED ANXIETY DISORDER
     Route: 048
     Dates: start: 20060116, end: 20060203
  11. ZOLPIDEM TARTRATE [Concomitant]
     Indication: GENERALISED ANXIETY DISORDER
     Route: 048
     Dates: start: 20060116, end: 20060202
  12. ZOLPIDEM TARTRATE [Concomitant]
     Route: 048
     Dates: start: 20060203, end: 20061117
  13. DOMPERIDONE [Concomitant]
     Indication: GENERALISED ANXIETY DISORDER
     Route: 048
     Dates: start: 20060116
  14. PIPRAZOLAM [Concomitant]
     Indication: GENERALISED ANXIETY DISORDER
     Route: 048
     Dates: start: 20060303
  15. EMTRICITABINE W/TENOFOVIR [Concomitant]
     Indication: HIV INFECTION
     Route: 048
     Dates: start: 20071101

REACTIONS (6)
  - BLOOD BILIRUBIN INCREASED [None]
  - DIARRHOEA [None]
  - HYPOAESTHESIA ORAL [None]
  - JAUNDICE [None]
  - PLATELET COUNT DECREASED [None]
  - RASH [None]
